FAERS Safety Report 4393426-6 (Version None)
Quarter: 2004Q3

REPORT INFORMATION
  Report Type: 
  Country: None (occurrence: None)
  Receive Date: 20040709
  Receipt Date: 20040624
  Transmission Date: 20050211
  Serious: Yes (Disabling)
  Sender: FDA-Public Use
  Company Number: 200412184JP

PATIENT
  Age: 67 Year
  Sex: Male
  Weight: 55 kg

DRUGS (13)
  1. ARAVA [Suspect]
     Indication: RHEUMATOID ARTHRITIS
     Route: 048
     Dates: start: 20031121, end: 20040424
  2. GLAKAY [Concomitant]
     Indication: OSTEOPOROSIS
     Route: 048
  3. ONE-ALPHA [Concomitant]
     Indication: OSTEOPOROSIS
     Route: 048
  4. PARIET [Concomitant]
     Indication: GASTRIC ULCER
     Route: 048
  5. ULCERLMIN [Concomitant]
     Indication: GASTRIC ULCER
     Route: 048
  6. CYTOTEC [Concomitant]
     Indication: GASTRIC ULCER
     Route: 048
  7. GASMOTIN [Concomitant]
     Indication: GASTRIC ULCER
     Route: 048
  8. NAUZELIN [Concomitant]
     Indication: GASTRIC ULCER
     Route: 048
  9. HARNAL [Concomitant]
     Indication: DYSURIA
     Route: 048
  10. EURODIN [Concomitant]
     Indication: INSOMNIA
     Route: 048
  11. PREDNISOLONE [Concomitant]
     Indication: MUSCULOSKELETAL PAIN
     Route: 048
     Dates: start: 20040219, end: 20040304
  12. QUESTRAN [Concomitant]
     Route: 048
     Dates: start: 20040424, end: 20040511
  13. RHEUMATREX [Concomitant]
     Indication: MUSCULOSKELETAL PAIN
     Route: 048
     Dates: start: 20030220, end: 20031120

REACTIONS (5)
  - CONDITION AGGRAVATED [None]
  - ENDOPHTHALMITIS [None]
  - EYE INFECTION BACTERIAL [None]
  - OPEN ANGLE GLAUCOMA [None]
  - RHEUMATOID ARTHRITIS [None]
